FAERS Safety Report 7374746-X (Version None)
Quarter: 2011Q1

REPORT INFORMATION
  Report Type: 
  Country: None (occurrence: None)
  Receive Date: 20110325
  Receipt Date: 20101003
  Transmission Date: 20110831
  Serious: No
  Sender: FDA-Public Use
  Company Number: US-MYLANLABS-2010S1018318

PATIENT
  Sex: Female

DRUGS (1)
  1. FENTANYL-100 [Suspect]

REACTIONS (1)
  - MALAISE [None]
